FAERS Safety Report 21380861 (Version 1)
Quarter: 2022Q3

REPORT INFORMATION
  Report Type: Spontaneous
  Country: US (occurrence: US)
  Receive Date: 20220927
  Receipt Date: 20220927
  Transmission Date: 20221026
  Serious: Yes (Hospitalization)
  Sender: FDA-Public Use
  Company Number: US-JNJFOC-20220930698

PATIENT
  Age: 59 Year
  Sex: Female
  Weight: 97.610 kg

DRUGS (14)
  1. TOPAMAX [Suspect]
     Active Substance: TOPIRAMATE
     Indication: Weight decreased
     Route: 048
     Dates: start: 20220828, end: 20220829
  2. SYNTHROID [Concomitant]
     Active Substance: LEVOTHYROXINE SODIUM
  3. ACTOS [Concomitant]
     Active Substance: PIOGLITAZONE HYDROCHLORIDE
  4. FARXIGA [Concomitant]
     Active Substance: DAPAGLIFLOZIN PROPANEDIOL
  5. NOVOLOG [Concomitant]
     Active Substance: INSULIN ASPART
     Dosage: 10 UNITS
  6. SYMBICORT [Concomitant]
     Active Substance: BUDESONIDE\FORMOTEROL FUMARATE DIHYDRATE
     Route: 055
  7. BENTYL [Concomitant]
     Active Substance: DICYCLOMINE HYDROCHLORIDE
  8. ALBUTEROL [Concomitant]
     Active Substance: ALBUTEROL
     Route: 055
  9. HYOSCYAMINE [Concomitant]
     Active Substance: HYOSCYAMINE
  10. GLIMEPIRIDE [Concomitant]
     Active Substance: GLIMEPIRIDE
  11. OMEPRAZOLE [Concomitant]
     Active Substance: OMEPRAZOLE
  12. FAMOTIDINE [Concomitant]
     Active Substance: FAMOTIDINE
  13. TRAMADOL [Concomitant]
     Active Substance: TRAMADOL
  14. PHENTERMINE [Concomitant]
     Active Substance: PHENTERMINE

REACTIONS (5)
  - Short-bowel syndrome [Unknown]
  - Dyspnoea [Not Recovered/Not Resolved]
  - Acidosis [Recovered/Resolved]
  - Hyperventilation [Unknown]
  - Off label use [Unknown]

NARRATIVE: CASE EVENT DATE: 20220801
